FAERS Safety Report 4434718-1 (Version None)
Quarter: 2004Q3

REPORT INFORMATION
  Report Type: 
  Country: None (occurrence: None)
  Receive Date: 20040827
  Receipt Date: 20040526
  Transmission Date: 20050211
  Serious: Yes (Hospitalization)
  Sender: FDA-Public Use
  Company Number: US-BRISTOL-MYERS SQUIBB COMPANY-12597639

PATIENT
  Age: 75 Year
  Sex: Male

DRUGS (1)
  1. DEFINITY [Suspect]
     Dosage: DILUTED
     Route: 040
     Dates: start: 20040525, end: 20040525

REACTIONS (1)
  - BRADYCARDIA [None]
